FAERS Safety Report 17869853 (Version 2)
Quarter: 2020Q3

REPORT INFORMATION
  Report Type: Spontaneous
  Country: PT (occurrence: PT)
  Receive Date: 20200608
  Receipt Date: 20200811
  Transmission Date: 20201103
  Serious: Yes (Life-Threatening, Hospitalization, Other)
  Sender: FDA-Public Use
  Company Number: PT-AUROBINDO-AUR-APL-2020-026980

PATIENT
  Age: 73 Year
  Sex: Female

DRUGS (2)
  1. INSULIN [Concomitant]
     Active Substance: INSULIN NOS
     Indication: TYPE 2 DIABETES MELLITUS
     Dosage: UNK
     Route: 065
  2. AMOXICILLIN+CLAVULANIC ACID POWDER FOR INJECTABLE SOLUTION [Suspect]
     Active Substance: AMOXICILLIN\CLAVULANIC ACID
     Indication: PNEUMONIA
     Dosage: 1 DOSAGE FORM
     Route: 042

REACTIONS (8)
  - Cardio-respiratory arrest [Recovering/Resolving]
  - Arteriosclerosis [Recovering/Resolving]
  - Anaphylactic reaction [Recovering/Resolving]
  - Shock [Recovering/Resolving]
  - Electrocardiogram ST segment elevation [Recovered/Resolved]
  - Rash [Recovering/Resolving]
  - Altered state of consciousness [Recovering/Resolving]
  - Kounis syndrome [Recovering/Resolving]
